FAERS Safety Report 24879458 (Version 1)
Quarter: 2025Q1

REPORT INFORMATION
  Report Type: Spontaneous
  Country: US (occurrence: None)
  Receive Date: 20250123
  Receipt Date: 20250123
  Transmission Date: 20250409
  Serious: Yes (Disabling)
  Sender: FDA-CTU
  Company Number: None

PATIENT
  Age: 28 Year
  Sex: Female

DRUGS (1)
  1. CIPROFLOXACIN [Suspect]
     Active Substance: CIPROFLOXACIN

REACTIONS (7)
  - Diarrhoea [None]
  - Swelling [None]
  - Peripheral swelling [None]
  - Joint swelling [None]
  - Pain in extremity [None]
  - Arthralgia [None]
  - Neck pain [None]

NARRATIVE: CASE EVENT DATE: 20210301
